FAERS Safety Report 8574605-0 (Version None)
Quarter: 2012Q3

REPORT INFORMATION
  Report Type: 
  Country: None (occurrence: None)
  Receive Date: 20120807
  Receipt Date: 20120803
  Transmission Date: 20120928
  Serious: Yes (Hospitalization)
  Sender: FDA-Public Use
  Company Number: IT-AMGEN-ITASP2012048510

PATIENT
  Age: 72 Year
  Sex: Female

DRUGS (5)
  1. MEDROL [Concomitant]
     Dosage: 6 MG, UNK
     Route: 048
     Dates: start: 19980101, end: 20120802
  2. ARAVA [Concomitant]
     Indication: RHEUMATOID ARTHRITIS
     Dosage: 20 MG, QD
  3. PROLIA [Suspect]
     Indication: OSTEOPOROSIS POSTMENOPAUSAL
     Dosage: 60 MG, Q6MO
     Route: 058
     Dates: start: 20120202
  4. DIBASE [Concomitant]
     Dosage: 1000 IU, UNK
     Route: 048
     Dates: start: 20120601, end: 20120802
  5. CACIT                              /07357001/ [Concomitant]
     Dosage: 1000 MG, UNK
     Route: 048
     Dates: start: 20020101, end: 20120802

REACTIONS (1)
  - FEMUR FRACTURE [None]
